FAERS Safety Report 9463553 (Version 2)
Quarter: 2013Q3

REPORT INFORMATION
  Report Type: Report from Study
  Country: AR (occurrence: AR)
  Receive Date: 20130819
  Receipt Date: 20130911
  Transmission Date: 20140515
  Serious: Yes (Death, Life-Threatening, Hospitalization, Other)
  Sender: FDA-Public Use
  Company Number: AR-BRISTOL-MYERS SQUIBB COMPANY-19186964

PATIENT
  Age: 48 Year
  Sex: Male

DRUGS (4)
  1. ERBITUX SOLN FOR INF 5MG/ML [Suspect]
     Indication: COLORECTAL CANCER METASTATIC
     Dosage: INFUSION.?RECENT DOSE:03JUN2013
     Route: 042
     Dates: start: 20130221, end: 20130603
  2. FLUOROURACIL [Suspect]
     Indication: COLORECTAL CANCER METASTATIC
     Dosage: RECENT DOSE:03JUN2013
     Dates: end: 20130603
  3. FOLINIC ACID [Suspect]
     Indication: COLORECTAL CANCER METASTATIC
     Dosage: RECENT DOSE:03JUN2013
     Dates: end: 20130603
  4. OXALIPLATIN [Suspect]
     Indication: COLORECTAL CANCER METASTATIC
     Dosage: RECENT DOSE:03JUN2013
     Dates: end: 20130603

REACTIONS (2)
  - Pyelonephritis [Fatal]
  - Sepsis [Fatal]
